FAERS Safety Report 9166109 (Version 2)
Quarter: 2013Q1

REPORT INFORMATION
  Report Type: Report from Study
  Country: FR (occurrence: FR)
  Receive Date: 20130315
  Receipt Date: 20130328
  Transmission Date: 20140127
  Serious: Yes (Hospitalization)
  Sender: FDA-Public Use
  Company Number: FR-CELGENEUS-056-21880-13030785

PATIENT
  Age: 43 Year
  Sex: 0
  Weight: 52.7 kg

DRUGS (8)
  1. REVLIMID [Suspect]
     Indication: KAPOSI^S SARCOMA AIDS RELATED
     Route: 048
     Dates: start: 20120917
  2. ASPERGIC [Concomitant]
     Indication: THROMBOSIS PROPHYLAXIS
     Dosage: 100 MILLIGRAM
     Route: 065
     Dates: start: 20120917
  3. ZELITREX [Concomitant]
     Indication: INFECTION
     Dosage: 500
     Route: 065
     Dates: start: 20120625
  4. DUROGESIC [Concomitant]
     Indication: DRUG DEPENDENCE
     Dosage: 18.5 MICROGRAM
     Route: 065
     Dates: start: 20130107
  5. WELLVONE [Concomitant]
     Indication: PROPHYLAXIS
     Dosage: 750
     Route: 065
     Dates: start: 20110518
  6. PREZISTA [Concomitant]
     Indication: HIV INFECTION
     Dosage: 400
     Route: 065
     Dates: start: 20110518
  7. TRUVADA [Concomitant]
     Indication: HIV INFECTION
     Route: 065
     Dates: start: 20090415
  8. NORVIR [Concomitant]
     Indication: HIV INFECTION
     Dosage: 100 MILLIGRAM
     Route: 065
     Dates: start: 20091209

REACTIONS (1)
  - Pneumonia influenzal [Recovered/Resolved]
